FAERS Safety Report 9406070 (Version 1)
Quarter: 2013Q3

REPORT INFORMATION
  Report Type: Report from Study
  Country: NL (occurrence: NL)
  Receive Date: 20130717
  Receipt Date: 20130717
  Transmission Date: 20140515
  Serious: Yes (Other)
  Sender: FDA-Public Use
  Company Number: NL-B.I. PHARMACEUTICALS,INC./RIDGEFIELD-2013-NL-00503NL

PATIENT
  Age: 53 Year
  Sex: Male
  Weight: 102 kg

DRUGS (4)
  1. PRADAXA [Suspect]
     Indication: ARRHYTHMIA
     Dosage: 220 MG
     Dates: start: 20120622
  2. VIRAMUNE XR [Suspect]
     Dosage: 400 MG
     Dates: start: 20090609
  3. KIVEXA [Concomitant]
     Dosage: 300 MG
     Dates: start: 20090609
  4. METOPROLOL [Concomitant]
     Dosage: 200 MG
     Dates: start: 20111008

REACTIONS (5)
  - Fatigue [Recovered/Resolved with Sequelae]
  - Gastrointestinal disorder [Recovered/Resolved]
  - Sensation of heaviness [Recovered/Resolved with Sequelae]
  - Somnolence [Recovered/Resolved]
  - Haematoma [Recovered/Resolved]
